FAERS Safety Report 24275600 (Version 3)
Quarter: 2024Q4

REPORT INFORMATION
  Report Type: Spontaneous
  Country: US (occurrence: US)
  Receive Date: 20240903
  Receipt Date: 20241011
  Transmission Date: 20250115
  Serious: Yes (Death, Other)
  Sender: JOHNSON AND JOHNSON
  Company Number: US-JNJFOC-20240870068

PATIENT
  Age: 93 Year
  Sex: Male

DRUGS (4)
  1. ERLEADA [Suspect]
     Active Substance: APALUTAMIDE
     Indication: Prostate cancer
     Route: 048
     Dates: start: 202405, end: 20240823
  2. LISINOPRIL [Concomitant]
     Active Substance: LISINOPRIL
     Dosage: 20 MG 9AM AND 10MFG HS
     Dates: start: 20240823
  3. GABAPENTIN [Concomitant]
     Active Substance: GABAPENTIN
     Dates: start: 20240822
  4. D3 1000 IU [Concomitant]
     Dates: start: 20240822

REACTIONS (3)
  - Arrhythmia [Fatal]
  - Drug ineffective [Unknown]
  - Hypertension [Recovered/Resolved]
